FAERS Safety Report 20113210 (Version 1)
Quarter: 2021Q4

REPORT INFORMATION
  Report Type: Spontaneous
  Country: US (occurrence: None)
  Receive Date: 20211124
  Receipt Date: 20211124
  Transmission Date: 20220303
  Serious: Yes (Disabling)
  Sender: FDA-Public Use
  Company Number: None

PATIENT
  Age: 18 Year
  Sex: Male
  Weight: 80.55 kg

DRUGS (1)
  1. REGLAN [Suspect]
     Active Substance: METOCLOPRAMIDE HYDROCHLORIDE
     Indication: Nausea
     Dates: start: 20211124, end: 20211124

REACTIONS (8)
  - Dizziness [None]
  - Hypoaesthesia [None]
  - Cerebrovascular accident [None]
  - Headache [None]
  - Anxiety [None]
  - Formication [None]
  - Dissociation [None]
  - Fear [None]

NARRATIVE: CASE EVENT DATE: 20211124
